FAERS Safety Report 5079626-0 (Version None)
Quarter: 2006Q3

REPORT INFORMATION
  Report Type: 
  Country: None (occurrence: None)
  Receive Date: 20060814
  Receipt Date: 20060801
  Transmission Date: 20061208
  Serious: Yes (Hospitalization)
  Sender: FDA-Public Use
  Company Number: DE-BOEHRINGER INGELHEIM PHARMACEUTICALS, INC.-2006-DE-04080DE

PATIENT
  Sex: Female
  Weight: 69 kg

DRUGS (8)
  1. SIFROL [Suspect]
     Indication: PARKINSON'S DISEASE
     Route: 048
     Dates: start: 20000101
  2. SIFROL [Suspect]
     Route: 048
  3. STALEVO 100 [Concomitant]
     Indication: PARKINSON'S DISEASE
  4. STALEVO 100 [Concomitant]
  5. THYROXIN [Concomitant]
     Indication: THYROID DISORDER
  6. NACOM 100 RETARD [Concomitant]
     Indication: PARKINSON'S DISEASE
     Dosage: LEVODOPA 100 MG/CARBIDOPA
  7. ASPIRIN 100 PROTECT [Concomitant]
     Route: 048
  8. SELECTOL [Concomitant]
     Route: 048

REACTIONS (7)
  - BLEPHARITIS [None]
  - CONSTIPATION [None]
  - DIZZINESS POSTURAL [None]
  - DYSKINESIA [None]
  - HYPOAESTHESIA [None]
  - MOTOR DYSFUNCTION [None]
  - OEDEMA PERIPHERAL [None]
